FAERS Safety Report 23103708 (Version 1)
Quarter: 2023Q4

REPORT INFORMATION
  Report Type: Spontaneous
  Country: US (occurrence: None)
  Receive Date: 20231022
  Receipt Date: 20231022
  Transmission Date: 20240110
  Serious: Yes (Hospitalization)
  Sender: FDA-Public Use
  Company Number: None

PATIENT
  Age: 59 Year
  Sex: Male

DRUGS (1)
  1. LISINOPRIL [Suspect]
     Active Substance: LISINOPRIL
     Dosage: OTHER QUANTITY : 1/2 TAB;?FREQUENCY : DAILY;?
     Route: 048
     Dates: start: 20220216, end: 20221118

REACTIONS (1)
  - Angioedema [None]

NARRATIVE: CASE EVENT DATE: 20221118
